FAERS Safety Report 23384580 (Version 4)
Quarter: 2024Q2

REPORT INFORMATION
  Report Type: Spontaneous
  Country: US (occurrence: US)
  Receive Date: 20240109
  Receipt Date: 20240401
  Transmission Date: 20240715
  Serious: Yes (Other)
  Sender: FDA-Public Use
  Company Number: US-PFIZER INC-PV202400001910

PATIENT
  Age: 86 Year
  Sex: Female
  Weight: 86.8 kg

DRUGS (8)
  1. IBRANCE [Suspect]
     Active Substance: PALBOCICLIB
     Indication: Hormone receptor positive breast cancer
     Dosage: 125 MG TO 100 MG DAYS 1-21 Q28 DAYS
     Route: 048
     Dates: start: 20210527
  2. IBRANCE [Suspect]
     Active Substance: PALBOCICLIB
     Indication: Breast cancer female
     Dosage: 100 MG ONCE DAILY FOR 21 DAYS. 7 DAYS OFF (28 DAY CYCLE)
     Route: 048
  3. IBRANCE [Suspect]
     Active Substance: PALBOCICLIB
     Dosage: 75 MG
  4. IBRANCE [Suspect]
     Active Substance: PALBOCICLIB
     Dosage: 100 MG ONCE DAILY FOR 21 DAYS. 7 DAYS OFF (28 DAY CYCLE)
     Route: 048
  5. IBRANCE [Suspect]
     Active Substance: PALBOCICLIB
     Dosage: 100 MG, 1X/DAY
     Route: 048
  6. LETROZOLE [Concomitant]
     Active Substance: LETROZOLE
     Indication: Breast cancer
     Dosage: UNK
     Dates: start: 20210209, end: 2021
  7. LETROZOLE [Concomitant]
     Active Substance: LETROZOLE
     Dosage: UNK
     Dates: start: 20210527
  8. DENOSUMAB [Concomitant]
     Active Substance: DENOSUMAB
     Indication: Breast cancer
     Dosage: UNK

REACTIONS (3)
  - Neutropenia [Unknown]
  - Normocytic anaemia [Unknown]
  - Asthenia [Unknown]
